FAERS Safety Report 9513747 (Version 2)
Quarter: 2014Q1

REPORT INFORMATION
  Report Type: Spontaneous
  Country: US (occurrence: None)
  Receive Date: 20130305
  Receipt Date: 20140306
  Transmission Date: 20141002
  Serious: Yes (Other)
  Sender: FDA-Public Use
  Company Number: 163-21880-12102277

PATIENT
  Age: 71 Year
  Sex: Female

DRUGS (5)
  1. REVLIMID (LENALIDOMIDE) (CAPSULES) [Suspect]
     Indication: MYELODYSPLASTIC SYNDROME
     Dosage: 10 MG, 14 IN 21 D, PO
     Route: 048
     Dates: start: 20120917, end: 20120921
  2. HEMOCYTE (UNKNOWN) [Concomitant]
  3. PROMETHAZINE (PROMETHAZINE) (25 MILLIGRAM, UNKNOWN) [Concomitant]
  4. B-12 (CYANOCOBALAMIN) (UNKNOWN) [Concomitant]
  5. LORTAB (VICODIN) (UNKNOWN) [Concomitant]

REACTIONS (6)
  - Hypersensitivity [None]
  - Rash [None]
  - Paraesthesia [None]
  - Ear swelling [None]
  - Rash macular [None]
  - Nausea [None]
